FAERS Safety Report 18712570 (Version 1)
Quarter: 2021Q1

REPORT INFORMATION
  Report Type: Spontaneous
  Country: US (occurrence: US)
  Receive Date: 20210107
  Receipt Date: 20210107
  Transmission Date: 20210419
  Serious: Yes (Hospitalization)
  Sender: FDA-Public Use
  Company Number: US-CELGENEUS-USA-20201208534

PATIENT
  Sex: Female

DRUGS (4)
  1. THALOMID [Suspect]
     Active Substance: THALIDOMIDE
     Indication: OFF LABEL USE
  2. THALOMID [Suspect]
     Active Substance: THALIDOMIDE
     Indication: IRON DEFICIENCY ANAEMIA
     Dosage: 50 MILLIGRAM
     Route: 048
     Dates: start: 201903
  3. THALOMID [Suspect]
     Active Substance: THALIDOMIDE
     Indication: THALASSAEMIA BETA
     Dosage: 100 MILLIGRAM
     Route: 048
     Dates: start: 201811
  4. THALOMID [Suspect]
     Active Substance: THALIDOMIDE
     Indication: GASTROINTESTINAL ANGIODYSPLASIA
     Dosage: 100 MILLIGRAM
     Route: 048
     Dates: start: 201608

REACTIONS (1)
  - Hepatic cirrhosis [Unknown]
